FAERS Safety Report 24995593 (Version 1)
Quarter: 2025Q1

REPORT INFORMATION
  Report Type: Spontaneous
  Country: US (occurrence: US)
  Receive Date: 20250221
  Receipt Date: 20250221
  Transmission Date: 20250409
  Serious: No
  Sender: VERTEX
  Company Number: US-VERTEX PHARMACEUTICALS-2025-002516

PATIENT
  Age: 16 Year

DRUGS (2)
  1. TRIKAFTA [Suspect]
     Active Substance: ELEXACAFTOR\IVACAFTOR\TEZACAFTOR
     Indication: Cystic fibrosis
     Route: 048
  2. CREON [Concomitant]
     Active Substance: PANCRELIPASE AMYLASE\PANCRELIPASE LIPASE\PANCRELIPASE PROTEASE

REACTIONS (12)
  - Viral infection [Recovered/Resolved]
  - Cystic fibrosis related diabetes [Not Recovered/Not Resolved]
  - Postural orthostatic tachycardia syndrome [Unknown]
  - Migraine [Unknown]
  - Gastrooesophageal reflux disease [Unknown]
  - Hydrocephalus [Unknown]
  - Asthma [Unknown]
  - Anxiety [Unknown]
  - Anaemia [Unknown]
  - Visual impairment [Unknown]
  - Attention deficit hyperactivity disorder [Unknown]
  - Depression [Unknown]
